FAERS Safety Report 10196414 (Version 1)
Quarter: 2014Q2

REPORT INFORMATION
  Report Type: Spontaneous
  Country: US (occurrence: None)
  Receive Date: 20140522
  Receipt Date: 20140522
  Transmission Date: 20141212
  Serious: Yes (Disabling, Other)
  Sender: FDA-Public Use
  Company Number: ANI-2014-1379520

PATIENT
  Age: 43 Year
  Sex: Female

DRUGS (3)
  1. VALPROIC ACID [Suspect]
     Indication: EPILEPSY
  2. CARBAMAZEPINE [Suspect]
     Indication: EPILEPSY
  3. PHENOBARBITAL [Concomitant]

REACTIONS (5)
  - Radius fracture [None]
  - Vitamin D deficiency [None]
  - Osteopenia [None]
  - Fall [None]
  - Wrist fracture [None]
